FAERS Safety Report 9171130 (Version 1)
Quarter: 2013Q1

REPORT INFORMATION
  Report Type: Spontaneous
  Country: US (occurrence: US)
  Receive Date: 20130319
  Receipt Date: 20130319
  Transmission Date: 20140127
  Serious: Yes (Death)
  Sender: FDA-Public Use
  Company Number: US-SANOFI-AVENTIS-2013SA027058

PATIENT
  Age: 53 Year
  Sex: Male

DRUGS (1)
  1. RILUTEK [Suspect]
     Route: 048

REACTIONS (1)
  - Death [Fatal]
